FAERS Safety Report 9425636 (Version 1)
Quarter: 2013Q3

REPORT INFORMATION
  Report Type: Report from Study
  Country: US (occurrence: US)
  Receive Date: 20130729
  Receipt Date: 20130729
  Transmission Date: 20140515
  Serious: Yes (Hospitalization, Other)
  Sender: FDA-Public Use
  Company Number: US-BAYER-2013-087416

PATIENT
  Sex: Male

DRUGS (4)
  1. ACETYLSALICYLIC ACID({=100 MG) [Suspect]
     Indication: ANTIPLATELET THERAPY
     Dosage: PRE-PROCEDURAL ANTIPLATELET THERAPY: DAILY DOSE 325 MG
     Route: 048
  2. ACETYLSALICYLIC ACID({=100 MG) [Suspect]
     Indication: ANTIPLATELET THERAPY
     Dosage: POST-PROCEDURAL ANTIPLATELET THERAPY: DAILY DOSE 325 MG
     Route: 048
  3. PRASUGREL [Suspect]
     Indication: ANTIPLATELET THERAPY
     Dosage: PRE-PROCEDURAL ANTIPLATELET THERAPY: 60 MG, ONCE, LOAD
     Route: 048
  4. PRASUGREL [Suspect]
     Indication: ANTIPLATELET THERAPY
     Dosage: POST-PROCEDURAL ANTIPLATELET THERAPY: DAILY DOSE 10 MG
     Route: 048

REACTIONS (2)
  - Epistaxis [None]
  - Haematocrit decreased [None]
